FAERS Safety Report 9773603 (Version 5)
Quarter: 2014Q1

REPORT INFORMATION
  Report Type: Spontaneous
  Country: IT (occurrence: None)
  Receive Date: 20131217
  Receipt Date: 20140228
  Transmission Date: 20141002
  Serious: Yes (Hospitalization)
  Sender: FDA-Public Use
  Company Number: AUR-APL-2013-10540

PATIENT
  Age: 59 Year
  Sex: Female

DRUGS (2)
  1. CITALOPRAM [Suspect]
     Indication: MAJOR DEPRESSION
     Dosage: 1 DOSAGE FORMS (1 DOSAGE FORMS, 1 IN 1 D), ORAL
     Route: 048
     Dates: start: 20131001, end: 20131024
  2. MIRTAZAPINE [Suspect]
     Indication: MAJOR DEPRESSION
     Route: 048
     Dates: start: 20131024, end: 20131024

REACTIONS (4)
  - Intentional self-injury [None]
  - Coma [None]
  - Drug abuse [None]
  - Suicide attempt [None]
